FAERS Safety Report 12097450 (Version 2)
Quarter: 2017Q1

REPORT INFORMATION
  Report Type: Other
  Country: US (occurrence: US)
  Receive Date: 20160221
  Receipt Date: 20170210
  Transmission Date: 20170428
  Serious: Yes (Other)
  Sender: FDA-Public Use
  Company Number: US-ACORDA-ACO_110623_2015

PATIENT
  Age: 66 Year
  Sex: Female

DRUGS (3)
  1. AMPYRA [Suspect]
     Active Substance: DALFAMPRIDINE
     Dosage: 10 MG 1 TAB Q 12 HRS
     Route: 048
     Dates: start: 20150326, end: 20150425
  2. COPAXONE [Suspect]
     Active Substance: GLATIRAMER ACETATE
     Indication: MULTIPLE SCLEROSIS
     Dosage: UNK
     Route: 065
     Dates: start: 20141207
  3. AMPYRA [Suspect]
     Active Substance: DALFAMPRIDINE
     Indication: PRODUCT USED FOR UNKNOWN INDICATION
     Dosage: 10 MG, Q 12 HRS
     Route: 048
     Dates: start: 201408, end: 201502

REACTIONS (20)
  - Peripheral swelling [Not Recovered/Not Resolved]
  - Anxiety [Unknown]
  - Therapy cessation [Recovered/Resolved]
  - Fall [Unknown]
  - Gait disturbance [Not Recovered/Not Resolved]
  - Headache [Unknown]
  - Therapy cessation [Not Recovered/Not Resolved]
  - Rib fracture [None]
  - Movement disorder [Unknown]
  - Contusion [Unknown]
  - Balance disorder [Unknown]
  - Chest injury [Unknown]
  - Back injury [Unknown]
  - Depression [Unknown]
  - Pain [Unknown]
  - Alopecia [Unknown]
  - Fall [Unknown]
  - Multiple sclerosis [Unknown]
  - Fatigue [Unknown]
  - Dizziness [Unknown]

NARRATIVE: CASE EVENT DATE: 2015
